FAERS Safety Report 21036695 (Version 1)
Quarter: 2022Q3

REPORT INFORMATION
  Report Type: Spontaneous
  Country: JP (occurrence: JP)
  Receive Date: 20220702
  Receipt Date: 20220702
  Transmission Date: 20221027
  Serious: Yes (Hospitalization, Other)
  Sender: FDA-Public Use
  Company Number: JP-Inventia-000560

PATIENT
  Age: 83 Year
  Sex: Male

DRUGS (1)
  1. DULOXETINE [Suspect]
     Active Substance: DULOXETINE
     Indication: Pain

REACTIONS (3)
  - Depression [Recovered/Resolved]
  - Suicidal ideation [Unknown]
  - Inappropriate antidiuretic hormone secretion [Recovered/Resolved]
